FAERS Safety Report 4606966-9 (Version None)
Quarter: 2005Q1

REPORT INFORMATION
  Report Type: 
  Country: None (occurrence: None)
  Receive Date: 20050310
  Receipt Date: 20050225
  Transmission Date: 20050727
  Serious: Yes (Other)
  Sender: FDA-Public Use
  Company Number: 2005038241

PATIENT
  Age: 12 Year
  Sex: Male
  Weight: 47.1741 kg

DRUGS (2)
  1. GEODON [Suspect]
     Indication: AUTISM
     Dosage: 60 MG (20 MG, 1 IN 1 D), ORAL
     Route: 048
     Dates: start: 20041029
  2. CLONIDINE [Suspect]
     Indication: SLEEP DISORDER
     Dosage: 0.2 MG (0.1 MG, 2 IN 1 D), ORAL
     Route: 048

REACTIONS (4)
  - BLOOD PRESSURE DECREASED [None]
  - EATING DISORDER [None]
  - SOMNOLENCE [None]
  - WEIGHT DECREASED [None]
